FAERS Safety Report 6706368-5 (Version None)
Quarter: 2010Q2

REPORT INFORMATION
  Report Type: 
  Country: None (occurrence: None)
  Receive Date: 20100503
  Receipt Date: 20100421
  Transmission Date: 20101027
  Serious: Yes (Life-Threatening, Disabling)
  Sender: FDA-Public Use
  Company Number: JP-SANOFI-AVENTIS-2010SA015880

PATIENT
  Age: 74 Year
  Sex: Male

DRUGS (5)
  1. ELPLAT [Suspect]
     Indication: COLON CANCER
     Route: 041
     Dates: start: 20100201, end: 20100201
  2. ELPLAT [Suspect]
     Route: 041
  3. XELODA [Suspect]
     Indication: COLON CANCER
     Route: 048
     Dates: start: 20100201
  4. AVASTIN [Suspect]
     Indication: COLON CANCER
     Route: 041
     Dates: start: 20100201, end: 20100201
  5. AVASTIN [Suspect]
     Route: 041

REACTIONS (3)
  - DIARRHOEA [None]
  - DISSEMINATED INTRAVASCULAR COAGULATION [None]
  - RENAL FAILURE ACUTE [None]
